FAERS Safety Report 10400643 (Version 1)
Quarter: 2014Q3

REPORT INFORMATION
  Report Type: Spontaneous
  Country: US (occurrence: US)
  Receive Date: 20140821
  Receipt Date: 20140821
  Transmission Date: 20150326
  Serious: Yes (Hospitalization)
  Sender: FDA-Public Use
  Company Number: US-B.I. PHARMACEUTICALS,INC./RIDGEFIELD-2014-BI-37918BP

PATIENT
  Age: 83 Year
  Sex: Male
  Weight: 106.4 kg

DRUGS (11)
  1. LISINOPRIL. [Concomitant]
     Active Substance: LISINOPRIL
     Dosage: 10 MG
     Route: 048
  2. KLOR CON [Concomitant]
     Dosage: 10 MEQ
     Route: 048
  3. PRADAXA [Suspect]
     Active Substance: DABIGATRAN ETEXILATE MESYLATE
     Indication: PRODUCT USED FOR UNKNOWN INDICATION
     Dosage: 300 MG
     Route: 048
  4. SIMVASTATIN. [Concomitant]
     Active Substance: SIMVASTATIN
     Dosage: 80 MG
     Route: 048
  5. SINGULAIR [Concomitant]
     Active Substance: MONTELUKAST SODIUM
     Dosage: 10 MG
     Route: 048
  6. PRAMIPEXOLE [Concomitant]
     Active Substance: PRAMIPEXOLE
     Dosage: 0.5 MG
     Route: 048
  7. LORATADINE. [Concomitant]
     Active Substance: LORATADINE
     Dosage: 10 MG
     Route: 048
  8. BUMETANIDE. [Concomitant]
     Active Substance: BUMETANIDE
     Dosage: 0.5 MG
     Route: 048
  9. NEXIUM [Concomitant]
     Active Substance: ESOMEPRAZOLE MAGNESIUM
     Dosage: 80 MG
     Route: 048
  10. TRAZODONE [Concomitant]
     Active Substance: TRAZODONE HYDROCHLORIDE
     Dosage: 50 MG
     Route: 048
  11. MAG OXIDE [Concomitant]
     Dosage: 1200 MG
     Route: 048

REACTIONS (1)
  - Epistaxis [Recovered/Resolved]

NARRATIVE: CASE EVENT DATE: 201112
